FAERS Safety Report 4891087-0 (Version None)
Quarter: 2006Q1

REPORT INFORMATION
  Report Type: 
  Country: None (occurrence: None)
  Receive Date: 20060125
  Receipt Date: 20051003
  Transmission Date: 20060701
  Serious: Yes (Death, Hospitalization, Other)
  Sender: FDA-Public Use
  Company Number: US-MERCK-0510USA02633

PATIENT
  Age: 85 Year
  Sex: Female
  Weight: 64 kg

DRUGS (1)
  1. VIOXX [Suspect]
     Indication: PAIN MANAGEMENT
     Route: 048
     Dates: start: 20010813, end: 20031013

REACTIONS (43)
  - ABDOMINAL PAIN [None]
  - ACUTE MYOCARDIAL INFARCTION [None]
  - ANXIETY [None]
  - ARTHRALGIA [None]
  - ASTHENIA [None]
  - ATRIAL FIBRILLATION [None]
  - ATRIAL FLUTTER [None]
  - ATRIOVENTRICULAR BLOCK FIRST DEGREE [None]
  - BLOOD GLUCOSE INCREASED [None]
  - BLOOD POTASSIUM DECREASED [None]
  - CARDIAC FAILURE CONGESTIVE [None]
  - CARDIOMEGALY [None]
  - CARDIOVASCULAR DISORDER [None]
  - CHEST PAIN [None]
  - CHOLELITHIASIS [None]
  - CONSTIPATION [None]
  - CORONARY ARTERY DISEASE [None]
  - DIVERTICULUM INTESTINAL [None]
  - ESCHERICHIA URINARY TRACT INFECTION [None]
  - GASTROENTERITIS [None]
  - GASTROINTESTINAL HAEMORRHAGE [None]
  - HYPERTENSION [None]
  - IRRITABLE BOWEL SYNDROME [None]
  - LOWER GASTROINTESTINAL HAEMORRHAGE [None]
  - LUMBAR SPINAL STENOSIS [None]
  - MUSCULOSKELETAL CHEST PAIN [None]
  - MYOCARDIAL INFARCTION [None]
  - MYOCARDIAL RUPTURE [None]
  - NAUSEA [None]
  - NEUROGENIC BLADDER [None]
  - OCCULT BLOOD POSITIVE [None]
  - PAIN IN EXTREMITY [None]
  - PALPITATIONS [None]
  - PELVIC FRACTURE [None]
  - SINUS BRADYCARDIA [None]
  - SINUS TACHYCARDIA [None]
  - SPINAL COLUMN STENOSIS [None]
  - SUDDEN DEATH [None]
  - SUPRAPUBIC PAIN [None]
  - SUPRAVENTRICULAR TACHYCARDIA [None]
  - URINARY RETENTION [None]
  - URINARY TRACT INFECTION [None]
  - VOMITING [None]
